FAERS Safety Report 9521897 (Version 2)
Quarter: 2013Q3

REPORT INFORMATION
  Report Type: Report from Study
  Country: AU (occurrence: AU)
  Receive Date: 20130913
  Receipt Date: 20130913
  Transmission Date: 20140515
  Serious: Yes (Disabling, Other)
  Sender: FDA-Public Use
  Company Number: PHHY2013AU067773

PATIENT
  Age: 41 Year
  Sex: Female
  Weight: 70 kg

DRUGS (4)
  1. GILENYA [Suspect]
     Indication: MULTIPLE SCLEROSIS
     Dosage: 0.5 MG, QD
     Route: 048
     Dates: start: 20130308, end: 20130522
  2. DOTHEP [Concomitant]
     Indication: DEPRESSION
     Dosage: 25 MG, TID
     Route: 048
     Dates: start: 201304
  3. MERSYNDOL [Concomitant]
     Indication: MIGRAINE
     Route: 048
  4. IMIGRAN [Concomitant]
     Indication: MIGRAINE
     Route: 048

REACTIONS (4)
  - Rash [Recovered/Resolved]
  - Dysphagia [Recovered/Resolved]
  - Pruritus generalised [Recovered/Resolved]
  - Dyspnoea [Recovered/Resolved]
